FAERS Safety Report 4897428-2 (Version None)
Quarter: 2006Q1

REPORT INFORMATION
  Report Type: 
  Country: None (occurrence: None)
  Receive Date: 20060130
  Receipt Date: 20060130
  Transmission Date: 20060701
  Serious: Yes (Other)
  Sender: FDA-Public Use
  Company Number: None

PATIENT
  Sex: Female
  Weight: 77.1115 kg

DRUGS (1)
  1. KINERET [Suspect]
     Indication: RHEUMATOID ARTHRITIS
     Dosage: 100MG  DAILY  SQ  (ONCE)
     Route: 058
     Dates: start: 20050905, end: 20050905

REACTIONS (2)
  - CHEST DISCOMFORT [None]
  - DYSPNOEA [None]
